FAERS Safety Report 9926186 (Version 2)
Quarter: 2014Q1

REPORT INFORMATION
  Report Type: Spontaneous
  Country: IT (occurrence: IT)
  Receive Date: 20140226
  Receipt Date: 20140226
  Transmission Date: 20141002
  Serious: Yes (Other)
  Sender: FDA-Public Use
  Company Number: IT-PFIZER INC-2014048965

PATIENT
  Age: 87 Year
  Sex: Female

DRUGS (8)
  1. TRIATEC [Suspect]
     Indication: HYPERTENSION
     Dosage: 5 MG, DAILY
     Route: 048
     Dates: start: 20131201, end: 20131210
  2. TRIATEC [Interacting]
     Dosage: 5 MG, DAILY
     Route: 048
     Dates: start: 20131210
  3. MODURETIC [Interacting]
     Indication: HYPERTENSION
     Dosage: 55 MG, DAILY, STRENGTH: 5 MG+ 50 MG
     Route: 048
     Dates: start: 20131201, end: 20131210
  4. AMIODARONE HYDROCHLORIDE [Concomitant]
  5. PANTORC [Concomitant]
  6. NORVASC [Concomitant]
  7. CARDIOASPIRIN [Concomitant]
  8. TORVAST [Concomitant]

REACTIONS (2)
  - Drug interaction [Unknown]
  - Hyperkalaemia [Unknown]
